FAERS Safety Report 7155955-1 (Version None)
Quarter: 2010Q4

REPORT INFORMATION
  Report Type: 
  Country: None (occurrence: None)
  Receive Date: 20101214
  Receipt Date: 20101203
  Transmission Date: 20110411
  Serious: Yes (Hospitalization)
  Sender: FDA-Public Use
  Company Number: PHHO2010GB17585

PATIENT
  Sex: Male

DRUGS (5)
  1. ZOLEDRONATE T29581+SOLINJ+BM [Suspect]
     Indication: METASTASES TO BONE
     Dosage: UNK
     Dates: start: 20101005
  2. DOCETAXEL [Concomitant]
     Indication: METASTASES TO BONE
     Dosage: UNK
     Dates: start: 20101005
  3. PREDNISOLONE [Concomitant]
     Indication: METASTASES TO BONE
     Dosage: UNK
     Dates: start: 20101005, end: 20101007
  4. STRONTIUM CHLORIDE SR-89 [Concomitant]
  5. CALCICHEW [Concomitant]

REACTIONS (4)
  - ELECTROCARDIOGRAM QT PROLONGED [None]
  - HYPOCALCAEMIA [None]
  - HYPOMAGNESAEMIA [None]
  - MALAISE [None]
